FAERS Safety Report 8947631 (Version 4)
Quarter: 2013Q1

REPORT INFORMATION
  Report Type: Spontaneous
  Country: US (occurrence: US)
  Receive Date: 20121204
  Receipt Date: 20130213
  Transmission Date: 20140127
  Serious: Yes (Hospitalization, Other)
  Sender: FDA-Public Use
  Company Number: US-TEVA-373610USA

PATIENT
  Age: 34 None
  Sex: Female

DRUGS (4)
  1. COPAXONE [Suspect]
     Indication: MULTIPLE SCLEROSIS
     Route: 058
     Dates: start: 20120926, end: 20121121
  2. LISINOPRIL [Concomitant]
  3. AMLODIPINE [Concomitant]
  4. METFORMIN [Concomitant]

REACTIONS (6)
  - Apnoea [Recovered/Resolved]
  - Blood pressure decreased [Recovered/Resolved]
  - Loss of consciousness [Recovered/Resolved]
  - Unresponsive to stimuli [Recovered/Resolved]
  - Syncope [Recovered/Resolved]
  - Convulsion [Recovered/Resolved]
